FAERS Safety Report 8961236 (Version 2)
Quarter: 2013Q3

REPORT INFORMATION
  Report Type: Report from Study
  Country: GB (occurrence: GB)
  Receive Date: 20121212
  Receipt Date: 20130725
  Transmission Date: 20140515
  Serious: Yes (Other)
  Sender: FDA-Public Use
  Company Number: GB-ACTELION-A-CH2010-42358

PATIENT
  Age: 16 Year
  Sex: Female

DRUGS (5)
  1. ZAVESCA [Suspect]
     Indication: NIEMANN-PICK DISEASE
     Dosage: 200 MG, TID
     Route: 048
     Dates: start: 20070207
  2. IMIPRAMINE [Concomitant]
     Indication: CATAPLEXY
     Dosage: UNK
     Dates: start: 20060331
  3. TEGRETOL [Concomitant]
     Indication: CONVULSION
  4. LAMOTRIGINE [Concomitant]
     Indication: CONVULSION
  5. MICROGYNON [Concomitant]

REACTIONS (2)
  - Convulsion [Unknown]
  - Concomitant disease aggravated [Unknown]
